FAERS Safety Report 24970453 (Version 1)
Quarter: 2025Q1

REPORT INFORMATION
  Report Type: Spontaneous
  Country: US (occurrence: US)
  Receive Date: 20250214
  Receipt Date: 20250214
  Transmission Date: 20250408
  Serious: Yes (Other)
  Sender: TORRENT PHARMA INC.
  Company Number: US-MLMSERVICE-20250204-PI386194-00246-1

PATIENT
  Age: 56 Year
  Sex: Male

DRUGS (1)
  1. OLANZAPINE [Suspect]
     Active Substance: OLANZAPINE
     Indication: Manic symptom
     Route: 048

REACTIONS (1)
  - Hypertransaminasaemia [Recovering/Resolving]
